FAERS Safety Report 9839319 (Version 3)
Quarter: 2014Q1

REPORT INFORMATION
  Report Type: Spontaneous
  Country: DE (occurrence: DE)
  Receive Date: 20140123
  Receipt Date: 20140306
  Transmission Date: 20141002
  Serious: Yes (Other)
  Sender: FDA-Public Use
  Company Number: PHHY2013DE148019

PATIENT
  Sex: Female

DRUGS (4)
  1. GALVUS [Suspect]
     Indication: DIABETES MELLITUS
     Dosage: 2 DF (50 MG), QD
     Dates: start: 201312, end: 20131208
  2. METFORMIN [Suspect]
     Indication: DIABETES MELLITUS
     Dosage: 1000 MG, UNK
     Dates: start: 201310, end: 20131208
  3. METOPROLOL [Suspect]
     Indication: HYPERTENSION
     Dosage: 100 MG, UNK
     Dates: end: 20131208
  4. CALCIUM [Suspect]
     Dosage: UNK UKN, UNK

REACTIONS (5)
  - Drug hypersensitivity [Unknown]
  - Pruritus [Recovered/Resolved]
  - Scratch [Recovering/Resolving]
  - Local swelling [Unknown]
  - Acute stress disorder [Unknown]
